FAERS Safety Report 6719226-7 (Version None)
Quarter: 2010Q2

REPORT INFORMATION
  Report Type: 
  Country: None (occurrence: None)
  Receive Date: 20100507
  Receipt Date: 20100427
  Transmission Date: 20101027
  Serious: Yes (Death)
  Sender: FDA-Public Use
  Company Number: 576587

PATIENT
  Age: 58 Year
  Sex: Female

DRUGS (3)
  1. FLUDARABINE PHOSPHATE [Suspect]
     Indication: MULTIPLE MYELOMA
     Dosage: 40 MG/M2 MILLIGRAM(S)/SQ, METER; INTRAVENOUS DRIP
     Route: 041
  2. CYCLOPHOSPHAMIDE [Concomitant]
  3. THERAPEUTIC RADIOPHARMACEUTICALS [Concomitant]

REACTIONS (13)
  - APHASIA [None]
  - BLINDNESS [None]
  - CENTRAL NERVOUS SYSTEM LESION [None]
  - COMA [None]
  - CONFUSIONAL STATE [None]
  - DEPRESSED LEVEL OF CONSCIOUSNESS [None]
  - EXTENSOR PLANTAR RESPONSE [None]
  - LETHARGY [None]
  - MOVEMENT DISORDER [None]
  - MUSCLE SPASTICITY [None]
  - NEUROTOXICITY [None]
  - PUPILLARY REFLEX IMPAIRED [None]
  - UNRESPONSIVE TO STIMULI [None]
